FAERS Safety Report 6596871-3 (Version None)
Quarter: 2010Q1

REPORT INFORMATION
  Report Type: 
  Country: None (occurrence: None)
  Receive Date: 20100212
  Receipt Date: 20090828
  Transmission Date: 20100710
  Serious: No
  Sender: FDA-Public Use
  Company Number: 2009-00561

PATIENT
  Age: 81 Year
  Sex: Female
  Weight: 80.7403 kg

DRUGS (2)
  1. ZICAM COLD REMEDY NASAL GEL [Suspect]
     Dosage: ABOUT 1YEAR AGO-6/1/2009
     Dates: start: 20090601
  2. BENICAR [Concomitant]

REACTIONS (1)
  - ANOSMIA [None]
